FAERS Safety Report 16059439 (Version 1)
Quarter: 2019Q1

REPORT INFORMATION
  Report Type: Spontaneous
  Country: US (occurrence: US)
  Receive Date: 20190311
  Receipt Date: 20190311
  Transmission Date: 20190418
  Serious: No
  Sender: FDA-Public Use
  Company Number: US-GALDERMA-US18031397

PATIENT
  Sex: Male

DRUGS (1)
  1. TRI-LUMA [Suspect]
     Active Substance: FLUOCINOLONE ACETONIDE\HYDROQUINONE\TRETINOIN
     Indication: DARK CIRCLES UNDER EYES
     Route: 061
     Dates: start: 20180811, end: 20180813

REACTIONS (4)
  - Skin atrophy [Not Recovered/Not Resolved]
  - Product use in unapproved indication [Recovered/Resolved]
  - Condition aggravated [Not Recovered/Not Resolved]
  - Rash [Not Recovered/Not Resolved]
